FAERS Safety Report 5356859-7 (Version None)
Quarter: 2007Q2

REPORT INFORMATION
  Report Type: 
  Country: None (occurrence: None)
  Receive Date: 20070614
  Receipt Date: 20060926
  Transmission Date: 20071010
  Serious: No
  Sender: FDA-Public Use
  Company Number: US-ASTRAZENECA-2006UW18851

PATIENT
  Age: 91 Year
  Sex: Female

DRUGS (3)
  1. ATACAND [Suspect]
     Route: 048
  2. ATACAND [Interacting]
     Route: 048
  3. BENADRYL [Interacting]

REACTIONS (3)
  - DRUG INTERACTION [None]
  - PRURITUS [None]
  - RASH [None]
